FAERS Safety Report 22075540 (Version 1)
Quarter: 2023Q1

REPORT INFORMATION
  Report Type: Spontaneous
  Country: US (occurrence: None)
  Receive Date: 20230308
  Receipt Date: 20230308
  Transmission Date: 20230418
  Serious: No
  Sender: FDA-Public Use
  Company Number: None

PATIENT
  Sex: Male

DRUGS (1)
  1. AVONEX PEN [Suspect]
     Active Substance: INTERFERON BETA-1A
     Indication: Multiple sclerosis
     Dosage: OTHER STRENGTH : 30MCG/.5M;?OTHER QUANTITY : 30 MCG;?FREQUENCY : WEEKLY;?
     Route: 030
     Dates: start: 202009

REACTIONS (4)
  - Drug ineffective [None]
  - Hypoaesthesia [None]
  - Hypoaesthesia [None]
  - Paraesthesia [None]
